FAERS Safety Report 7793767-6 (Version None)
Quarter: 2011Q4

REPORT INFORMATION
  Report Type: 
  Country: None (occurrence: None)
  Receive Date: 20111003
  Receipt Date: 20110920
  Transmission Date: 20120403
  Serious: Yes (Death)
  Sender: FDA-Public Use
  Company Number: GB-MYLANLABS-2011S1020045

PATIENT
  Age: 13 Year
  Sex: Male

DRUGS (1)
  1. THIORIDAZINE HCL [Suspect]
     Route: 065

REACTIONS (1)
  - EPILEPSY [None]
